FAERS Safety Report 22211760 (Version 2)
Quarter: 2023Q2

REPORT INFORMATION
  Report Type: Spontaneous
  Country: US (occurrence: None)
  Receive Date: 20230414
  Receipt Date: 20230525
  Transmission Date: 20230722
  Serious: Yes (Life-Threatening, Hospitalization, Other)
  Sender: FDA-Public Use
  Company Number: 2023A083801

PATIENT
  Sex: Female

DRUGS (1)
  1. FASENRA [Suspect]
     Active Substance: BENRALIZUMAB
     Route: 058

REACTIONS (6)
  - Loss of consciousness [Unknown]
  - Illness [Unknown]
  - Myocardial infarction [Unknown]
  - COVID-19 [Unknown]
  - Tachycardia [Unknown]
  - Asthma [Unknown]
